FAERS Safety Report 5378799-X (Version None)
Quarter: 2007Q2

REPORT INFORMATION
  Report Type: 
  Country: None (occurrence: None)
  Receive Date: 20070530
  Receipt Date: 20070226
  Transmission Date: 20071010
  Serious: No
  Sender: FDA-Public Use
  Company Number: 2007PV030748

PATIENT
  Age: 65 Year
  Sex: Female

DRUGS (4)
  1. BYETTA [Suspect]
     Indication: DIABETES MELLITUS
     Dosage: 5 MCG; BID; SC; 10 MCG; BID; 5 MCG; BID
     Route: 058
  2. BYETTA [Suspect]
     Indication: DIABETES MELLITUS
     Dosage: 5 MCG; BID; SC; 10 MCG; BID; 5 MCG; BID
     Route: 058
     Dates: start: 20061114
  3. LANTUS [Concomitant]
  4. METFORMIN HCL [Concomitant]

REACTIONS (1)
  - HYPOAESTHESIA [None]
